FAERS Safety Report 7359065-X (Version None)
Quarter: 2011Q1

REPORT INFORMATION
  Report Type: 
  Country: None (occurrence: None)
  Receive Date: 20110317
  Receipt Date: 20110307
  Transmission Date: 20110831
  Serious: Yes (Death, Other)
  Sender: FDA-Public Use
  Company Number: US-WATSON-2011-03153

PATIENT
  Sex: Male

DRUGS (2)
  1. METOCLOPRAMIDE HYDROCHLORIDE [Suspect]
     Indication: PRODUCT USED FOR UNKNOWN INDICATION
     Dosage: UNK
     Route: 048
     Dates: start: 20060201, end: 20090201
  2. REGLAN [Suspect]
     Indication: PRODUCT USED FOR UNKNOWN INDICATION
     Dosage: UNK
     Route: 048
     Dates: start: 20060201, end: 20090201

REACTIONS (15)
  - EPILEPSY [None]
  - CONDITION AGGRAVATED [None]
  - MOVEMENT DISORDER [None]
  - POLYNEUROPATHY [None]
  - TARDIVE DYSKINESIA [None]
  - DYSKINESIA [None]
  - NEURODEGENERATIVE DISORDER [None]
  - DEATH [None]
  - INCORRECT DRUG ADMINISTRATION DURATION [None]
  - DYSAESTHESIA [None]
  - GAIT DISTURBANCE [None]
  - TREMOR [None]
  - BRUXISM [None]
  - EXTRAPYRAMIDAL DISORDER [None]
  - AKATHISIA [None]
